FAERS Safety Report 14937622 (Version 11)
Quarter: 2020Q3

REPORT INFORMATION
  Report Type: Spontaneous
  Country: GR (occurrence: GR)
  Receive Date: 20180525
  Receipt Date: 20200722
  Transmission Date: 20201102
  Serious: Yes (Death, Life-Threatening, Other)
  Sender: FDA-Public Use
  Company Number: PHHY2018GR006241

PATIENT
  Age: 25 Year
  Sex: Male

DRUGS (19)
  1. VALPROIC ACID SANDOZ [Suspect]
     Active Substance: VALPROIC ACID
     Dosage: UNK
     Route: 048
  2. QUETIAPINE. [Suspect]
     Active Substance: QUETIAPINE
     Indication: DEPRESSION
     Dosage: UNK
     Route: 048
  3. VALPROIC ACID. [Interacting]
     Active Substance: VALPROIC ACID
     Indication: DEPRESSION
     Dosage: UNK
     Route: 048
  4. VALPROIC ACID. [Interacting]
     Active Substance: VALPROIC ACID
     Indication: OVERDOSE
  5. FLUOXETINE [Suspect]
     Active Substance: FLUOXETINE HYDROCHLORIDE
     Indication: DEPRESSION
     Dosage: UNK
     Route: 065
  6. DESLORATADINE. [Interacting]
     Active Substance: DESLORATADINE
     Indication: DEPRESSION
  7. PROPRANOLOL [Interacting]
     Active Substance: PROPRANOLOL HYDROCHLORIDE
     Indication: OVERDOSE
     Dosage: UNK
     Route: 065
  8. ALPRAZOLAM. [Interacting]
     Active Substance: ALPRAZOLAM
     Indication: OVERDOSE
  9. FLUOXETINE [Suspect]
     Active Substance: FLUOXETINE HYDROCHLORIDE
     Indication: OVERDOSE
  10. VALPROIC ACID SANDOZ [Suspect]
     Active Substance: VALPROIC ACID
     Indication: DEPRESSION
     Dosage: UNK
     Route: 065
  11. MOCLOBEMIDE [Interacting]
     Active Substance: MOCLOBEMIDE
     Indication: DEPRESSION
     Dosage: UNK
     Route: 065
  12. MOCLOBEMIDE [Interacting]
     Active Substance: MOCLOBEMIDE
     Indication: OVERDOSE
     Dosage: OVERDOSE
     Route: 065
  13. PERINDOPRIL [Interacting]
     Active Substance: PERINDOPRIL
     Indication: OVERDOSE
     Dosage: UNK
     Route: 065
  14. ALPRAZOLAM. [Interacting]
     Active Substance: ALPRAZOLAM
     Indication: DEPRESSION
     Dosage: UNK
     Route: 048
  15. CITALOPRAM [Interacting]
     Active Substance: CITALOPRAM HYDROBROMIDE
     Indication: DEPRESSION
     Dosage: UNK
     Route: 065
  16. CITALOPRAM [Interacting]
     Active Substance: CITALOPRAM HYDROBROMIDE
     Indication: OVERDOSE
  17. QUETIAPINE. [Suspect]
     Active Substance: QUETIAPINE
     Indication: OVERDOSE
  18. DESLORATADINE. [Interacting]
     Active Substance: DESLORATADINE
     Indication: OVERDOSE
     Dosage: UNK
     Route: 065
  19. FLURBIPROFEN. [Interacting]
     Active Substance: FLURBIPROFEN
     Indication: OVERDOSE
     Dosage: UNK
     Route: 065

REACTIONS (11)
  - Arrhythmia [Fatal]
  - Ischaemic cerebral infarction [Fatal]
  - Contraindicated product administered [Fatal]
  - Toxicity to various agents [Fatal]
  - Product use issue [Unknown]
  - Intentional overdose [Fatal]
  - Off label use [Unknown]
  - Hypertrophic cardiomyopathy [Fatal]
  - Electrocardiogram QT prolonged [Fatal]
  - Sudden death [Fatal]
  - Drug interaction [Fatal]
